FAERS Safety Report 9542155 (Version 2)
Quarter: 2013Q3

REPORT INFORMATION
  Report Type: Report from Study
  Country: CA (occurrence: CA)
  Receive Date: 20130923
  Receipt Date: 20130923
  Transmission Date: 20140515
  Serious: Yes (Other)
  Sender: FDA-Public Use
  Company Number: CA-JNJFOC-20130902842

PATIENT
  Age: 44 Year
  Sex: Female
  Weight: 57 kg

DRUGS (5)
  1. REMICADE [Suspect]
     Indication: CROHN^S DISEASE
     Dosage: 0, 2, 6 WEEKS. LOADING DOSE NO.1
     Route: 042
     Dates: start: 20130823, end: 20130912
  2. PENTASA [Concomitant]
     Route: 048
  3. PARIET [Concomitant]
     Route: 048
  4. METAMUCIL [Concomitant]
     Route: 048
  5. IMODIUM [Concomitant]
     Route: 048

REACTIONS (2)
  - Carpal tunnel syndrome [Unknown]
  - Rash generalised [Unknown]
